FAERS Safety Report 13860753 (Version 1)
Quarter: 2017Q3

REPORT INFORMATION
  Report Type: Spontaneous
  Country: US (occurrence: US)
  Receive Date: 20170811
  Receipt Date: 20170811
  Transmission Date: 20171127
  Serious: No
  Sender: FDA-Public Use
  Company Number: None

PATIENT
  Age: 66 Year
  Sex: Female

DRUGS (1)
  1. EPCLUSA [Suspect]
     Active Substance: SOFOSBUVIR\VELPATASVIR

REACTIONS (4)
  - Crohn^s disease [None]
  - Diarrhoea [None]
  - Irritable bowel syndrome [None]
  - Condition aggravated [None]

NARRATIVE: CASE EVENT DATE: 20170801
